FAERS Safety Report 8212343-4 (Version None)
Quarter: 2012Q1

REPORT INFORMATION
  Report Type: 
  Country: None (occurrence: None)
  Receive Date: 20120315
  Receipt Date: 20120313
  Transmission Date: 20120608
  Serious: Yes (Life-Threatening, Hospitalization)
  Sender: FDA-Public Use
  Company Number: JP-SANOFI-AVENTIS-2012SA014121

PATIENT
  Age: 75 Year
  Sex: Male

DRUGS (4)
  1. LEVOLEUCOVORIN CALCIUM [Suspect]
     Indication: BLADDER CANCER
     Route: 041
     Dates: start: 20120101, end: 20120101
  2. OXALIPLATIN [Suspect]
     Indication: BLADDER CANCER
     Route: 041
     Dates: start: 20120101, end: 20120101
  3. FLUOROURACIL [Suspect]
     Indication: BLADDER CANCER
     Route: 041
     Dates: start: 20120101, end: 20120101
  4. FLUOROURACIL [Suspect]
     Route: 040
     Dates: start: 20120101, end: 20120101

REACTIONS (2)
  - CHRONIC OBSTRUCTIVE PULMONARY DISEASE [None]
  - DYSPNOEA [None]
